FAERS Safety Report 25639841 (Version 3)
Quarter: 2025Q3

REPORT INFORMATION
  Report Type: Spontaneous
  Country: US (occurrence: US)
  Receive Date: 20250804
  Receipt Date: 20250925
  Transmission Date: 20251020
  Serious: No
  Sender: PFIZER
  Company Number: US-PFIZER INC-202500154069

PATIENT
  Age: 9 Year
  Sex: Female
  Weight: 27.211 kg

DRUGS (2)
  1. GENOTROPIN [Suspect]
     Active Substance: SOMATROPIN
     Indication: Turner^s syndrome
     Dosage: 1.1MG NIGHTLY; ALTERNATES BETWEEN 1.2 AND 1.0MG
     Dates: start: 202505
  2. GENOTROPIN [Suspect]
     Active Substance: SOMATROPIN
     Dosage: 1.1MG NIGHTLY; ALTERNATES BETWEEN 1.2 AND 1.0MG
     Dates: start: 202505

REACTIONS (3)
  - Drug dose omission by device [Unknown]
  - Device information output issue [Unknown]
  - Device physical property issue [Unknown]

NARRATIVE: CASE EVENT DATE: 20250701
